FAERS Safety Report 16902036 (Version 2)
Quarter: 2019Q4

REPORT INFORMATION
  Report Type: Spontaneous
  Country: BE (occurrence: BE)
  Receive Date: 20191010
  Receipt Date: 20191225
  Transmission Date: 20200122
  Serious: Yes (Death, Life-Threatening, Hospitalization)
  Sender: FDA-Public Use
  Company Number: BE-TEVA-2019-BE-1118976

PATIENT
  Age: 63 Year
  Sex: Female
  Weight: 62 kg

DRUGS (8)
  1. TOTALIP 40 MG [Suspect]
     Active Substance: ATORVASTATIN CALCIUM
     Indication: HYPERCHOLESTEROLAEMIA
     Dosage: 1 DF
     Route: 048
  2. ASAFLOW 80 MG [Concomitant]
     Active Substance: ASPIRIN
     Indication: MYOCARDIAL INFARCTION
     Dosage: 1 DF
     Route: 048
  3. BISOPROLOL 5 MG [Suspect]
     Active Substance: BISOPROLOL
     Indication: MYOCARDIAL INFARCTION
     Dosage: 2.5 MG
     Route: 048
  4. PRIMPERAN 10MG [Concomitant]
     Indication: VOMITING
     Dosage: 1 DF
     Route: 030
     Dates: start: 20190822
  5. COVERSYL 5 MG [Suspect]
     Active Substance: PERINDOPRIL
     Indication: MYOCARDIAL INFARCTION
     Dosage: 1 DF
     Route: 048
  6. BEFACT FORTE [Concomitant]
     Indication: PARAESTHESIA
     Route: 048
     Dates: start: 20190820
  7. TRADONAL ODIS 50 MG [Suspect]
     Active Substance: TRAMADOL HYDROCHLORIDE
     Indication: BACK PAIN
     Dosage: 3 DF
     Route: 048
     Dates: start: 20190820
  8. COVERSYL 5 MG [Suspect]
     Active Substance: PERINDOPRIL
     Indication: HYPERTENSION

REACTIONS (4)
  - Abdominal pain upper [Fatal]
  - Vertigo [Fatal]
  - Pancreatitis acute [Fatal]
  - Vomiting [Fatal]

NARRATIVE: CASE EVENT DATE: 20190820
